FAERS Safety Report 9703931 (Version 1)
Quarter: 2013Q4

REPORT INFORMATION
  Report Type: Other
  Country: US (occurrence: US)
  Receive Date: 20131122
  Receipt Date: 20131122
  Transmission Date: 20140711
  Serious: Yes (Hospitalization, Other)
  Sender: FDA-Public Use
  Company Number: US-SHIRE-ALL1-2013-07850

PATIENT
  Age: 35 Year
  Sex: Male
  Weight: 65.76 kg

DRUGS (4)
  1. VYVANSE [Suspect]
     Indication: ATTENTION DEFICIT/HYPERACTIVITY DISORDER
     Dosage: 70 MG, 1X/DAY:QD
     Route: 048
     Dates: end: 201311
  2. XANAX [Suspect]
     Indication: ANXIETY
     Dosage: 1 MG, AS REQ^D
     Route: 048
     Dates: start: 201310, end: 201311
  3. SEROQUEL [Concomitant]
     Indication: SLEEP DISORDER
     Dosage: 75 MG, 1X/DAY:QD
     Route: 048
     Dates: start: 2012
  4. KLONOPIN [Concomitant]
     Indication: PRODUCT USED FOR UNKNOWN INDICATION
     Dosage: UNK, UNKNOWN
     Route: 065
     Dates: end: 201310

REACTIONS (10)
  - Thyroid disorder [Not Recovered/Not Resolved]
  - Convulsion [Recovered/Resolved]
  - Amnesia [Not Recovered/Not Resolved]
  - Disturbance in attention [Recovered/Resolved]
  - Malaise [Recovered/Resolved]
  - Feeling abnormal [Recovered/Resolved]
  - Memory impairment [Not Recovered/Not Resolved]
  - Fatigue [Not Recovered/Not Resolved]
  - Dizziness [Recovered/Resolved]
  - Vision blurred [Recovered/Resolved]
